FAERS Safety Report 9374420 (Version 1)
Quarter: 2013Q2

REPORT INFORMATION
  Report Type: Spontaneous
  Country: BR (occurrence: BR)
  Receive Date: 20130628
  Receipt Date: 20130628
  Transmission Date: 20140414
  Serious: Yes (Other)
  Sender: FDA-Public Use
  Company Number: PHHY2013BR066564

PATIENT
  Age: 56 Year
  Sex: Male

DRUGS (1)
  1. RASILEZ HCT [Suspect]
     Indication: HYPERTENSION
     Dosage: 1 DF, DAILY
     Route: 048
     Dates: start: 201209

REACTIONS (3)
  - Varicose ulceration [Not Recovered/Not Resolved]
  - Acne [Recovering/Resolving]
  - Swelling [Not Recovered/Not Resolved]
